FAERS Safety Report 11784713 (Version 1)
Quarter: 2015Q4

REPORT INFORMATION
  Report Type: Spontaneous
  Country: US (occurrence: US)
  Receive Date: 20151130
  Receipt Date: 20151130
  Transmission Date: 20160305
  Serious: No
  Sender: FDA-Public Use
  Company Number: US-009507513-1511USA010269

PATIENT
  Age: 20 Year
  Sex: Female
  Weight: 117.91 kg

DRUGS (1)
  1. NEXPLANON [Suspect]
     Active Substance: ETONOGESTREL
     Indication: CONTRACEPTION
     Dosage: LEFT ARM
     Route: 059
     Dates: start: 20130523

REACTIONS (4)
  - Menstruation delayed [Unknown]
  - Menstrual disorder [Not Recovered/Not Resolved]
  - Menstruation irregular [Unknown]
  - Polymenorrhoea [Unknown]

NARRATIVE: CASE EVENT DATE: 20130523
